FAERS Safety Report 7476108-3 (Version None)
Quarter: 2011Q2

REPORT INFORMATION
  Report Type: 
  Country: None (occurrence: None)
  Receive Date: 20110512
  Receipt Date: 20110510
  Transmission Date: 20111010
  Serious: Yes (Death, Other)
  Sender: FDA-Public Use
  Company Number: VE-PFIZER INC-2011100845

PATIENT
  Age: 82 Year
  Sex: Female

DRUGS (1)
  1. CADUET [Suspect]
     Indication: HYPERTENSION
     Dosage: 5/40 MG, 1X/DAY
     Route: 048
     Dates: start: 20090101, end: 20100801

REACTIONS (1)
  - ANEURYSM [None]
